FAERS Safety Report 7948206-9 (Version None)
Quarter: 2011Q4

REPORT INFORMATION
  Report Type: 
  Country: None (occurrence: None)
  Receive Date: 20111130
  Receipt Date: 20111122
  Transmission Date: 20120403
  Serious: Yes (Hospitalization)
  Sender: FDA-Public Use
  Company Number: BR-US-EMD SERONO, INC.-7098148

PATIENT
  Sex: Male

DRUGS (3)
  1. AMILORIDE AND HCTZ [Concomitant]
  2. REBIF [Suspect]
     Indication: RELAPSING-REMITTING MULTIPLE SCLEROSIS
     Dates: start: 20040501
  3. LOSARTAN POTASSIUM [Concomitant]

REACTIONS (2)
  - MENINGITIS [None]
  - DENGUE FEVER [None]
